FAERS Safety Report 20910724 (Version 1)
Quarter: 2022Q2

REPORT INFORMATION
  Report Type: Spontaneous
  Country: US (occurrence: None)
  Receive Date: 20220602
  Receipt Date: 20220602
  Transmission Date: 20220721
  Serious: Yes (Other)
  Sender: FDA-Public Use
  Company Number: None

PATIENT
  Age: 55 Year
  Sex: Male
  Weight: 112.5 kg

DRUGS (6)
  1. KETOROLAC [Suspect]
     Active Substance: KETOROLAC TROMETHAMINE
     Indication: Product used for unknown indication
     Dosage: OTHER FREQUENCY : ONCE;?
     Route: 030
     Dates: start: 20220526, end: 20220526
  2. IBUPROFEN [Concomitant]
     Active Substance: IBUPROFEN
  3. FUROSEMIDE [Concomitant]
     Active Substance: FUROSEMIDE
  4. MELATONIN [Concomitant]
     Active Substance: MELATONIN
  5. NICOTINE [Concomitant]
     Active Substance: NICOTINE
  6. MUCINEX DM [Concomitant]
     Active Substance: DEXTROMETHORPHAN HYDROBROMIDE\GUAIFENESIN

REACTIONS (2)
  - Diarrhoea [None]
  - Oedema [None]

NARRATIVE: CASE EVENT DATE: 20220526
